FAERS Safety Report 5573526-5 (Version None)
Quarter: 2007Q4

REPORT INFORMATION
  Report Type: 
  Country: None (occurrence: None)
  Receive Date: 20071226
  Receipt Date: 20071218
  Transmission Date: 20080405
  Serious: Yes (Life-Threatening)
  Sender: FDA-Public Use
  Company Number: NO-AVENTIS-200716146EU

PATIENT
  Age: 80 Year
  Sex: Female

DRUGS (5)
  1. KLEXANE                            /01708202/ [Suspect]
     Indication: ATRIAL FIBRILLATION
     Route: 058
     Dates: start: 20071026, end: 20071029
  2. MAREVAN [Suspect]
     Indication: ATRIAL FIBRILLATION
     Route: 048
     Dates: start: 20071026, end: 20071027
  3. MAREVAN [Suspect]
     Route: 048
     Dates: start: 20071028, end: 20071028
  4. MAREVAN [Suspect]
     Route: 048
     Dates: start: 20071029, end: 20071029
  5. CIPROXIN                           /00697201/ [Suspect]
     Route: 048
     Dates: start: 20071028, end: 20071107

REACTIONS (2)
  - INTRA-ABDOMINAL HAEMATOMA [None]
  - NEUTROPENIA [None]
